FAERS Safety Report 12273650 (Version 5)
Quarter: 2016Q4

REPORT INFORMATION
  Report Type: Report from Study
  Country: JP (occurrence: JP)
  Receive Date: 20160415
  Receipt Date: 20161007
  Transmission Date: 20170207
  Serious: Yes (Other)
  Sender: FDA-Public Use
  Company Number: JP-BRISTOL-MYERS SQUIBB COMPANY-BMS-2016-006445

PATIENT
  Age: 67 Year
  Sex: Male
  Weight: 68 kg

DRUGS (3)
  1. NIVOLUMAB [Suspect]
     Active Substance: NIVOLUMAB
     Indication: PRODUCT USED FOR UNKNOWN INDICATION
     Dosage: UNK
     Route: 065
     Dates: start: 201510, end: 201511
  2. IPILIMUMAB [Suspect]
     Active Substance: IPILIMUMAB
     Indication: MALIGNANT MELANOMA
     Dosage: 3 MG/KG, UNK
     Route: 042
     Dates: start: 20151216
  3. IPILIMUMAB [Suspect]
     Active Substance: IPILIMUMAB
     Dosage: 200 UNK, UNK
     Route: 042
     Dates: start: 20160105

REACTIONS (3)
  - Leukoderma [Not Recovered/Not Resolved]
  - Vogt-Koyanagi-Harada syndrome [Not Recovered/Not Resolved]
  - Interstitial lung disease [Recovering/Resolving]

NARRATIVE: CASE EVENT DATE: 20160126
